FAERS Safety Report 5151897-1 (Version None)
Quarter: 2006Q4

REPORT INFORMATION
  Report Type: 
  Country: None (occurrence: None)
  Receive Date: 20061108
  Receipt Date: 20061027
  Transmission Date: 20070319
  Serious: Yes (Hospitalization)
  Sender: FDA-Public Use
  Company Number: HQWYE694827OCT06

PATIENT
  Age: 57 Year
  Sex: Male

DRUGS (10)
  1. CORDARONE [Suspect]
     Dosage: 200 MG 1X PER 1 DAY ORAL
     Route: 048
  2. ASPIRIN [Suspect]
     Dosage: 75 MG POWDER (DOSE AND REGIMEN UNSPECIFIED) ORAL
     Route: 048
  3. LASIX [Suspect]
     Dosage: 20 MG 1X PER 1 DAY ORAL
     Route: 048
  4. OMEPRAZOLE [Suspect]
     Dosage: 20 MG 1X PER 1 DAY ORAL
     Route: 048
  5. TRANDOLAPRIL [Suspect]
     Dosage: 4 MG 1X PER 1 DAY ORAL
     Route: 048
  6. PREVISCAN (FLUINDIONE, ) [Suspect]
     Dosage: 20 MG 1X PER 1 DAY ORAL
     Route: 048
  7. FERROUS SULFATE TAB [Concomitant]
  8. ZOLPIDEM TARTRATE [Concomitant]
  9. LANTUS [Concomitant]
  10. NOVORAPID (INSULIN ASPART) [Concomitant]

REACTIONS (10)
  - ANAEMIA [None]
  - ARTHRALGIA [None]
  - BLOOD LACTATE DEHYDROGENASE INCREASED [None]
  - DYSPNOEA [None]
  - INTERNATIONAL NORMALISED RATIO INCREASED [None]
  - MELAENA [None]
  - OEDEMA PERIPHERAL [None]
  - OVERDOSE [None]
  - PAIN IN EXTREMITY [None]
  - WHITE BLOOD CELL COUNT INCREASED [None]
